FAERS Safety Report 16933248 (Version 4)
Quarter: 2019Q4

REPORT INFORMATION
  Report Type: Spontaneous
  Country: JP (occurrence: JP)
  Receive Date: 20191018
  Receipt Date: 20191112
  Transmission Date: 20200122
  Serious: Yes (Hospitalization, Disabling, Other)
  Sender: FDA-Public Use
  Company Number: JP-GLAXOSMITHKLINE-JP2019JPN186899

PATIENT
  Sex: Male
  Weight: 45 kg

DRUGS (11)
  1. ZANTAC [Suspect]
     Active Substance: RANITIDINE HYDROCHLORIDE
     Indication: GASTRIC ULCER
     Dosage: 150 MG, BID
     Route: 048
     Dates: start: 20000709, end: 20191002
  2. SILECE [Concomitant]
     Active Substance: FLUNITRAZEPAM
     Dosage: UNK
  3. AMLODIPINE BESILATE [Concomitant]
     Active Substance: AMLODIPINE BESYLATE
     Dosage: UNK
  4. NORVASC [Concomitant]
     Active Substance: AMLODIPINE BESYLATE
     Indication: HYPERTENSION
     Dosage: 2.5 MG, 1D
     Dates: start: 20010224
  5. PAXIL [Concomitant]
     Active Substance: PAROXETINE HYDROCHLORIDE
     Dosage: UNK
  6. PREMINENT [Concomitant]
     Active Substance: HYDROCHLOROTHIAZIDE\LOSARTAN POTASSIUM
     Indication: HYPERTENSION
     Dosage: 1 DF, 1D
     Dates: start: 20090221
  7. GANATON [Concomitant]
     Active Substance: ITOPRIDE
     Indication: GASTRITIS
     Dosage: 1 DF, TID
     Dates: start: 20050501
  8. CARDENALIN [Concomitant]
     Active Substance: DOXAZOSIN MESYLATE
     Dosage: UNK
  9. LOPEMIN [Concomitant]
     Dosage: UNK
  10. MYSLEE [Concomitant]
     Active Substance: ZOLPIDEM TARTRATE
     Dosage: UNK
  11. BEZATOL SR [Concomitant]
     Active Substance: BEZAFIBRATE
     Indication: DYSLIPIDAEMIA
     Dosage: 1 DF, BID
     Dates: start: 20001224

REACTIONS (3)
  - Haematuria [Unknown]
  - Bladder cancer [Recovered/Resolved with Sequelae]
  - Penile pain [Unknown]

NARRATIVE: CASE EVENT DATE: 2012
